FAERS Safety Report 4811474-6 (Version None)
Quarter: 2005Q4

REPORT INFORMATION
  Report Type: 
  Country: None (occurrence: None)
  Receive Date: 20051027
  Receipt Date: 20051017
  Transmission Date: 20060501
  Serious: Yes (Congenital Anomaly)
  Sender: FDA-Public Use
  Company Number: US-ROCHE-421776

PATIENT
  Age: 40 Year
  Sex: Female
  Weight: 65.8 kg

DRUGS (2)
  1. ACCUTANE [Suspect]
     Route: 048
     Dates: start: 20000615, end: 20010615
  2. ACCUTANE [Suspect]
     Route: 048
     Dates: start: 19990615, end: 19990615

REACTIONS (5)
  - CARDIAC DISORDER [None]
  - DRUG EXPOSURE DURING PREGNANCY [None]
  - FOETAL CARDIAC DISORDER [None]
  - LUNG DISORDER [None]
  - TRISOMY 21 [None]
